FAERS Safety Report 14759952 (Version 1)
Quarter: 2018Q2

REPORT INFORMATION
  Report Type: Spontaneous
  Country: US (occurrence: US)
  Receive Date: 20180413
  Receipt Date: 20180413
  Transmission Date: 20180711
  Serious: No
  Sender: FDA-Public Use
  Company Number: US-009507513-1804USA001827

PATIENT
  Age: 17 Year
  Sex: Female
  Weight: 73.47 kg

DRUGS (1)
  1. NEXPLANON [Suspect]
     Active Substance: ETONOGESTREL
     Indication: CONTRACEPTION
     Dosage: IMPLANT, 3 YEAR; LEFT ARM
     Route: 059
     Dates: start: 20150605

REACTIONS (5)
  - Menorrhagia [Not Recovered/Not Resolved]
  - Vaginal odour [Unknown]
  - Pain [Unknown]
  - Metrorrhagia [Recovered/Resolved]
  - Dysmenorrhoea [Not Recovered/Not Resolved]

NARRATIVE: CASE EVENT DATE: 20150605
